FAERS Safety Report 9026228 (Version 2)
Quarter: 2013Q2

REPORT INFORMATION
  Report Type: Spontaneous
  Country: US (occurrence: None)
  Receive Date: 20120525
  Receipt Date: 20120827
  Transmission Date: 20140414
  Serious: Yes (Other)
  Sender: FDA-Public Use
  Company Number: 349438

PATIENT
  Age: 39 Year
  Sex: Female

DRUGS (1)
  1. VICTOZA [Suspect]
     Indication: TYPE 2 DIABETES MELLITUS
     Dosage: TYPE 2 DIABETES MELLITUS (TYPE 2 DIABETES MELLITUS)
     Route: 058

REACTIONS (2)
  - Nausea [None]
  - Blood glucose decreased [None]
